FAERS Safety Report 20625222 (Version 1)
Quarter: 2022Q1

REPORT INFORMATION
  Report Type: Spontaneous
  Country: US (occurrence: None)
  Receive Date: 20220323
  Receipt Date: 20220323
  Transmission Date: 20220423
  Serious: No
  Sender: FDA-Public Use
  Company Number: 2022A106853

PATIENT
  Age: 792 Month
  Sex: Male
  Weight: 102.5 kg

DRUGS (1)
  1. BYDUREON BCISE [Suspect]
     Active Substance: EXENATIDE
     Indication: Type 2 diabetes mellitus
     Route: 058
     Dates: start: 202201

REACTIONS (4)
  - Injection site nodule [Not Recovered/Not Resolved]
  - Drug dose omission by device [Unknown]
  - Drug effect less than expected [Unknown]
  - Device deployment issue [Unknown]

NARRATIVE: CASE EVENT DATE: 20220101
